FAERS Safety Report 20044829 (Version 1)
Quarter: 2021Q4

REPORT INFORMATION
  Report Type: Spontaneous
  Country: None (occurrence: US)
  Receive Date: 20211108
  Receipt Date: 20211108
  Transmission Date: 20220303
  Serious: No
  Sender: FDA-Public Use
  Company Number: US-Nephron Sterile Compounding Center-2121591

PATIENT
  Age: 39 Year
  Sex: Male
  Weight: 109 kg

DRUGS (14)
  1. SUCCINYLCHOLINE CHLORIDE [Suspect]
     Active Substance: SUCCINYLCHOLINE CHLORIDE
     Indication: Endotracheal intubation
     Route: 042
     Dates: start: 20211022, end: 20211022
  2. SEVOFLURANE [Concomitant]
     Active Substance: SEVOFLURANE
     Route: 055
     Dates: start: 20211022, end: 20211022
  3. LIDOCAINE [Concomitant]
     Active Substance: LIDOCAINE
     Route: 042
     Dates: start: 20211022, end: 20211022
  4. PROPOFOL [Concomitant]
     Active Substance: PROPOFOL
     Route: 040
     Dates: start: 20211022, end: 20211022
  5. KETAMINE HYDROCHLORIDE [Concomitant]
     Active Substance: KETAMINE HYDROCHLORIDE
     Route: 042
     Dates: start: 20211022, end: 20211022
  6. ROCURONIUM [Concomitant]
     Active Substance: ROCURONIUM BROMIDE
     Route: 042
     Dates: start: 20211022, end: 20211022
  7. DEXAMETHASONE [Concomitant]
     Active Substance: DEXAMETHASONE
     Route: 042
     Dates: start: 20211022, end: 20211022
  8. CEFAZOLIN SODIUM [Concomitant]
     Active Substance: CEFAZOLIN SODIUM
     Route: 040
     Dates: start: 20211022, end: 20211022
  9. ESMOLOL [Concomitant]
     Active Substance: ESMOLOL HYDROCHLORIDE
     Route: 042
     Dates: start: 20211022, end: 20211022
  10. FENTANYL [Concomitant]
     Active Substance: FENTANYL
     Route: 042
     Dates: start: 20211022, end: 20211022
  11. ONDANSETRON [Concomitant]
     Active Substance: ONDANSETRON
     Route: 042
     Dates: start: 20211022, end: 20211022
  12. GLYCOPYRROLATE [Concomitant]
     Active Substance: GLYCOPYRROLATE
     Route: 042
     Dates: start: 20211022, end: 20211022
  13. NEOSTIGMINE. [Concomitant]
     Active Substance: NEOSTIGMINE METHYLSULFATE
     Route: 042
     Dates: start: 20211022, end: 20211022
  14. LACTATED RINGERS SOLUTION [Concomitant]
     Active Substance: CALCIUM CHLORIDE\POTASSIUM CHLORIDE\SODIUM CHLORIDE\SODIUM LACTATE
     Route: 041
     Dates: start: 20211022, end: 20211022

REACTIONS (1)
  - Drug ineffective [Recovered/Resolved]

NARRATIVE: CASE EVENT DATE: 20211022
